FAERS Safety Report 26127537 (Version 1)
Quarter: 2025Q4

REPORT INFORMATION
  Report Type: Spontaneous
  Country: TR (occurrence: TR)
  Receive Date: 20251205
  Receipt Date: 20251205
  Transmission Date: 20260117
  Serious: Yes (Other)
  Sender: AMGEN
  Company Number: TR-AMGEN-TURSP2025238638

PATIENT
  Age: 69 Year
  Sex: Female

DRUGS (1)
  1. EVENITY [Suspect]
     Active Substance: ROMOSOZUMAB-AQQG
     Indication: Osteoporosis postmenopausal
     Dosage: UNK UNK, QMO
     Route: 065
     Dates: start: 202508, end: 202512

REACTIONS (1)
  - Multiple fractures [Unknown]

NARRATIVE: CASE EVENT DATE: 20250101
